FAERS Safety Report 4307722-1 (Version None)
Quarter: 2004Q1

REPORT INFORMATION
  Report Type: 
  Country: None (occurrence: None)
  Receive Date: 20040225
  Receipt Date: 20031105
  Transmission Date: 20041129
  Serious: Yes (Disabling)
  Sender: FDA-Public Use
  Company Number: WAES 0311USA00433

PATIENT
  Age: 77 Year
  Sex: Female

DRUGS (5)
  1. ZOCOR [Suspect]
     Indication: BLOOD CHOLESTEROL INCREASED
     Dosage: 20 MG/DAILY/PO
     Route: 048
     Dates: start: 19980101
  2. ZOCOR [Suspect]
     Indication: BLOOD CHOLESTEROL INCREASED
     Dosage: 5 MG/DAILY/PO; 10 MG/DAILY/PO
     Route: 048
     Dates: end: 20031102
  3. ZOCOR [Suspect]
     Indication: BLOOD CHOLESTEROL INCREASED
     Dosage: 5 MG/DAILY/PO; 10 MG/DAILY/PO
     Route: 048
     Dates: start: 20031103, end: 20031103
  4. VASOTEC [Concomitant]
  5. ASPIRIN [Concomitant]

REACTIONS (2)
  - MYALGIA [None]
  - PYREXIA [None]
